FAERS Safety Report 22037846 (Version 1)
Quarter: 2023Q1

REPORT INFORMATION
  Report Type: Other
  Country: PT (occurrence: None)
  Receive Date: 20230227
  Receipt Date: 20230227
  Transmission Date: 20230418
  Serious: Yes (Hospitalization)
  Sender: FDA-Public Use
  Company Number: PT-ROCHE-3292296

PATIENT
  Age: 51 Year
  Sex: Female

DRUGS (5)
  1. ENTRECTINIB [Suspect]
     Active Substance: ENTRECTINIB
     Indication: Anaplastic thyroid cancer
     Route: 065
     Dates: start: 202108
  2. ENTRECTINIB [Suspect]
     Active Substance: ENTRECTINIB
     Route: 065
     Dates: start: 20220315
  3. ENTRECTINIB [Suspect]
     Active Substance: ENTRECTINIB
     Route: 065
     Dates: start: 202204
  4. LENVATINIB [Concomitant]
     Active Substance: LENVATINIB
     Indication: Anaplastic thyroid cancer
     Dates: start: 2021
  5. PACLITAXEL [Concomitant]
     Active Substance: PACLITAXEL

REACTIONS (5)
  - Necrosis [Recovered/Resolved]
  - Inflammation [Recovered/Resolved]
  - Arthralgia [Unknown]
  - Myalgia [Unknown]
  - Fatigue [Unknown]

NARRATIVE: CASE EVENT DATE: 20220401
